FAERS Safety Report 5071855-5 (Version None)
Quarter: 2006Q3

REPORT INFORMATION
  Report Type: 
  Country: None (occurrence: None)
  Receive Date: 20060801
  Receipt Date: 20060713
  Transmission Date: 20061208
  Serious: Yes (Hospitalization)
  Sender: FDA-Public Use
  Company Number: WAES 0604USA00057

PATIENT
  Age: 74 Year
  Sex: Female

DRUGS (1)
  1. PRINZIDE [Suspect]
     Dosage: PO
     Route: 048
     Dates: start: 20021013

REACTIONS (1)
  - PITYRIASIS ROSEA [None]
